FAERS Safety Report 19422254 (Version 2)
Quarter: 2021Q2

REPORT INFORMATION
  Report Type: Spontaneous
  Country: PL (occurrence: PL)
  Receive Date: 20210616
  Receipt Date: 20210621
  Transmission Date: 20210717
  Serious: Yes (Other)
  Sender: FDA-Public Use
  Company Number: PL-ASTRAZENECA-2021A520277

PATIENT
  Age: 71 Year
  Sex: Female

DRUGS (9)
  1. OLAPARIB. [Suspect]
     Active Substance: OLAPARIB
     Indication: OVARIAN CANCER STAGE III
     Route: 048
     Dates: start: 202012
  2. OLAPARIB. [Suspect]
     Active Substance: OLAPARIB
     Indication: BRCA1 GENE MUTATION
     Route: 048
     Dates: start: 202012
  3. OLAPARIB. [Suspect]
     Active Substance: OLAPARIB
     Indication: OVARIAN CANCER STAGE III
     Route: 048
     Dates: start: 20210322
  4. OLAPARIB. [Suspect]
     Active Substance: OLAPARIB
     Indication: OVARIAN CANCER STAGE III
     Route: 048
     Dates: start: 202012
  5. OLAPARIB. [Suspect]
     Active Substance: OLAPARIB
     Indication: HAEMOGLOBIN
     Route: 048
     Dates: start: 20210322
  6. OLAPARIB. [Suspect]
     Active Substance: OLAPARIB
     Indication: HAEMOGLOBIN
     Route: 048
     Dates: start: 202012
  7. OLAPARIB. [Suspect]
     Active Substance: OLAPARIB
     Indication: BRCA1 GENE MUTATION
     Route: 048
     Dates: start: 20210322
  8. OLAPARIB. [Suspect]
     Active Substance: OLAPARIB
     Indication: HAEMOGLOBIN
     Route: 048
     Dates: start: 202012
  9. OLAPARIB. [Suspect]
     Active Substance: OLAPARIB
     Indication: BRCA1 GENE MUTATION
     Route: 048
     Dates: start: 202012

REACTIONS (1)
  - Anaemia [Unknown]

NARRATIVE: CASE EVENT DATE: 20210308
